FAERS Safety Report 7692525-0 (Version None)
Quarter: 2011Q3

REPORT INFORMATION
  Report Type: 
  Country: None (occurrence: None)
  Receive Date: 20110819
  Receipt Date: 20110812
  Transmission Date: 20111222
  Serious: Yes (Disabling)
  Sender: FDA-Public Use
  Company Number: FR-MERCK-1108FRA00063

PATIENT
  Age: 80 Year
  Sex: Female

DRUGS (5)
  1. SINGULAIR [Suspect]
     Route: 048
  2. METFORMIN PAMOATE [Suspect]
     Route: 048
  3. BENFLUOREX HYDROCHLORIDE [Suspect]
     Indication: DIABETES MELLITUS
     Route: 065
     Dates: start: 19990101, end: 20090101
  4. GLICLAZIDE [Suspect]
     Route: 048
  5. LEVOTHYROXINE SODIUM [Suspect]
     Route: 048

REACTIONS (2)
  - CORONARY ARTERY BYPASS [None]
  - CORONARY ARTERY DISEASE [None]
